FAERS Safety Report 7034759-4 (Version None)
Quarter: 2010Q4

REPORT INFORMATION
  Report Type: 
  Country: None (occurrence: None)
  Receive Date: 20101008
  Receipt Date: 20101001
  Transmission Date: 20110411
  Serious: Yes (Life-Threatening, Other)
  Sender: FDA-Public Use
  Company Number: PHHY2010US64810

PATIENT
  Sex: Female

DRUGS (3)
  1. VIVELLE-DOT [Suspect]
     Dosage: 0.0375 MG
     Route: 062
  2. NORVASC [Concomitant]
  3. ZANTAC [Concomitant]

REACTIONS (6)
  - FALL [None]
  - FEELING ABNORMAL [None]
  - JOINT DISLOCATION [None]
  - JOINT SPRAIN [None]
  - PAIN [None]
  - ROAD TRAFFIC ACCIDENT [None]
